FAERS Safety Report 13213948 (Version 1)
Quarter: 2017Q1

REPORT INFORMATION
  Report Type: Spontaneous
  Country: CN (occurrence: CN)
  Receive Date: 20170210
  Receipt Date: 20170210
  Transmission Date: 20170428
  Serious: Yes (Hospitalization)
  Sender: FDA-Public Use
  Company Number: CN-BAYER-2017-026373

PATIENT
  Age: 70 Year
  Sex: Female
  Weight: 60 kg

DRUGS (4)
  1. BAYASPIRIN 100 MG [Suspect]
     Active Substance: ASPIRIN
  2. ATORVASTATIN CALCIUM. [Suspect]
     Active Substance: ATORVASTATIN CALCIUM
     Indication: LIPID METABOLISM DISORDER
     Dosage: 1 DF, QD
     Route: 048
     Dates: start: 20161110, end: 20161118
  3. PHENYTOIN SODIUM. [Suspect]
     Active Substance: PHENYTOIN SODIUM
  4. DIVALPROEX SODIUM. [Suspect]
     Active Substance: DIVALPROEX SODIUM
     Dosage: UNK
     Dates: start: 20161106, end: 20161116

REACTIONS (1)
  - Hepatic function abnormal [None]

NARRATIVE: CASE EVENT DATE: 20161115
